FAERS Safety Report 5165528-8 (Version None)
Quarter: 2006Q4

REPORT INFORMATION
  Report Type: 
  Country: None (occurrence: None)
  Receive Date: 20061124
  Receipt Date: 20061110
  Transmission Date: 20070319
  Serious: Yes (Hospitalization)
  Sender: FDA-Public Use
  Company Number: 2006140032

PATIENT
  Age: 55 Year
  Sex: Male

DRUGS (4)
  1. INSPRA [Suspect]
     Indication: CARDIAC FAILURE
     Dosage: ORAL
  2. LORZAAR PLUS (HYDROCHLOROTHIAZIDE, LOSARTAN POTASSIUM) [Concomitant]
  3. BISOPROLOL FUMARATE [Concomitant]
  4. EZETIMIBE/SIMVASTATIN (EZETIMIBE, SIMVASTATIN) [Concomitant]

REACTIONS (1)
  - ATRIAL FIBRILLATION [None]
